FAERS Safety Report 5868860-5 (Version None)
Quarter: 2008Q3

REPORT INFORMATION
  Report Type: 
  Country: None (occurrence: None)
  Receive Date: 20080903
  Receipt Date: 20080826
  Transmission Date: 20090109
  Serious: Yes (Hospitalization)
  Sender: FDA-Public Use
  Company Number: JP-ASTRAZENECA-2008SE04127

PATIENT
  Age: 50 Year
  Sex: Male

DRUGS (2)
  1. BLOPRESS TABLETS 8 [Suspect]
     Indication: HYPERTENSION
     Route: 048
     Dates: start: 20080712, end: 20080820
  2. (CHINESE MEDICINES) [Suspect]
     Route: 048

REACTIONS (1)
  - LIVER DISORDER [None]
